FAERS Safety Report 18338122 (Version 3)
Quarter: 2020Q4

REPORT INFORMATION
  Report Type: Spontaneous
  Country: US (occurrence: US)
  Receive Date: 20201002
  Receipt Date: 20201013
  Transmission Date: 20210113
  Serious: Yes (Other)
  Sender: FDA-Public Use
  Company Number: US-PFIZER INC-2020380295

PATIENT
  Age: 49 Year
  Sex: Female
  Weight: 99.79 kg

DRUGS (3)
  1. RASUVO [Concomitant]
     Active Substance: METHOTREXATE SODIUM
     Dosage: 20 MG, WEEKLY
  2. PREMARIN [Suspect]
     Active Substance: ESTROGENS, CONJUGATED
     Indication: CERVIX CARCINOMA
     Dosage: 0.625 MG, 1X/DAY
  3. PREMARIN [Suspect]
     Active Substance: ESTROGENS, CONJUGATED
     Indication: HYSTERECTOMY

REACTIONS (8)
  - Fibromyalgia [Unknown]
  - Immune system disorder [Unknown]
  - Insomnia [Unknown]
  - Anxiety [Unknown]
  - Irritability [Unknown]
  - Abdominal discomfort [Unknown]
  - Granulomatosis with polyangiitis [Unknown]
  - Hormone level abnormal [Unknown]
